FAERS Safety Report 15374565 (Version 10)
Quarter: 2019Q1

REPORT INFORMATION
  Report Type: Spontaneous
  Country: JP (occurrence: JP)
  Receive Date: 20180912
  Receipt Date: 20190328
  Transmission Date: 20190417
  Serious: Yes (Death, Hospitalization, Other)
  Sender: FDA-Public Use
  Company Number: JP-009507513-1808JPN002946J

PATIENT
  Age: 76 Year
  Sex: Male
  Weight: 54 kg

DRUGS (2)
  1. KEYTRUDA [Suspect]
     Active Substance: PEMBROLIZUMAB
     Indication: LUNG ADENOCARCINOMA
     Dosage: 200 MILLIGRAM, Q3W
     Route: 041
     Dates: start: 20180808, end: 20180808
  2. AMLODIPINE [Concomitant]
     Active Substance: AMLODIPINE BESYLATE
     Indication: ESSENTIAL HYPERTENSION
     Dosage: 5 MILLIGRAM, QD
     Route: 048

REACTIONS (8)
  - Feeding disorder [Unknown]
  - Myocarditis [Fatal]
  - Cardiac failure [Fatal]
  - Cardiac tamponade [Fatal]
  - Depression [Unknown]
  - Pneumonia [Fatal]
  - Urinary tract infection [Fatal]
  - Dehydration [Recovered/Resolved]

NARRATIVE: CASE EVENT DATE: 2018
